FAERS Safety Report 11362804 (Version 1)
Quarter: 2015Q3

REPORT INFORMATION
  Report Type: Spontaneous
  Country: US (occurrence: None)
  Receive Date: 20150807
  Receipt Date: 20150807
  Transmission Date: 20151125
  Serious: Yes (Other)
  Sender: FDA-Public Use
  Company Number: DEP_02930_2015

PATIENT
  Age: 86 Year
  Sex: Female
  Weight: 52.16 kg

DRUGS (6)
  1. GRALISE [Suspect]
     Active Substance: GABAPENTIN
     Dates: start: 20150429, end: 20150509
  2. REMERON [Concomitant]
     Active Substance: MIRTAZAPINE
  3. DIOVAN [Concomitant]
     Active Substance: VALSARTAN
  4. CLONAZEPAM. [Concomitant]
     Active Substance: CLONAZEPAM
  5. TRAMADOL. [Concomitant]
     Active Substance: TRAMADOL
  6. OMEPRAZOLE. [Concomitant]
     Active Substance: OMEPRAZOLE

REACTIONS (5)
  - Abasia [None]
  - Balance disorder [None]
  - Dizziness [None]
  - Spinal column stenosis [None]
  - Groin pain [None]

NARRATIVE: CASE EVENT DATE: 20150429
